FAERS Safety Report 9485766 (Version 1)
Quarter: 2013Q3

REPORT INFORMATION
  Report Type: Spontaneous
  Country: US (occurrence: None)
  Receive Date: 20130822
  Receipt Date: 20130822
  Transmission Date: 20140515
  Serious: Yes (Other)
  Sender: FDA-Public Use
  Company Number: 2013SA072449

PATIENT
  Age: 65 Year
  Sex: Male
  Weight: 58.96 kg

DRUGS (1)
  1. UNISOM [Suspect]
     Indication: INSOMNIA

REACTIONS (2)
  - Malaise [None]
  - Influenza like illness [None]
